FAERS Safety Report 6667675-8 (Version None)
Quarter: 2010Q2

REPORT INFORMATION
  Report Type: 
  Country: None (occurrence: None)
  Receive Date: 20100405
  Receipt Date: 20100323
  Transmission Date: 20101027
  Serious: Yes (Hospitalization)
  Sender: FDA-Public Use
  Company Number: DE-CELGENEUS-062-21880-10032248

PATIENT
  Age: 74 Year
  Sex: Female
  Weight: 72 kg

DRUGS (4)
  1. REVLIMID [Suspect]
     Indication: MULTIPLE MYELOMA
     Route: 048
     Dates: start: 20100120
  2. DEXAMETHASONE [Suspect]
     Indication: MULTIPLE MYELOMA
     Route: 048
     Dates: start: 20100120
  3. PAMIDRONIC ACID [Concomitant]
     Indication: MULTIPLE MYELOMA
     Route: 065
     Dates: start: 20070112, end: 20100305
  4. METRONIDAZOLE [Concomitant]
     Indication: PAIN
     Route: 048
     Dates: start: 20100312

REACTIONS (1)
  - ADVERSE EVENT [None]
